FAERS Safety Report 15711573 (Version 1)
Quarter: 2018Q4

REPORT INFORMATION
  Report Type: Spontaneous
  Country: CN (occurrence: CN)
  Receive Date: 20181212
  Receipt Date: 20181212
  Transmission Date: 20190205
  Serious: Yes (Hospitalization)
  Sender: FDA-Public Use
  Company Number: CN-JNJFOC-20181207591

PATIENT
  Sex: Female
  Weight: 56 kg

DRUGS (3)
  1. TYLENOL ER 650MG TABLET [Suspect]
     Active Substance: ACETAMINOPHEN
     Route: 048
  2. TYLENOL ER 650MG TABLET [Suspect]
     Active Substance: ACETAMINOPHEN
     Indication: BODY TEMPERATURE INCREASED
     Route: 048
     Dates: start: 20180917, end: 20180924
  3. THYROZOL [Suspect]
     Active Substance: METHIMAZOLE
     Indication: HYPERTHYROIDISM
     Route: 048
     Dates: start: 20180801, end: 20180923

REACTIONS (1)
  - Agranulocytosis [Recovering/Resolving]
